FAERS Safety Report 15893069 (Version 1)
Quarter: 2019Q1

REPORT INFORMATION
  Report Type: Report from Study
  Country: US (occurrence: US)
  Receive Date: 20190130
  Receipt Date: 20190130
  Transmission Date: 20190417
  Serious: No
  Sender: FDA-Public Use
  Company Number: US-EXELIXIS-CABO-18016495

PATIENT
  Sex: Male

DRUGS (16)
  1. LISINOPRIL. [Concomitant]
     Active Substance: LISINOPRIL
  2. MULTIVITAMINS, COMBINATIONS [Concomitant]
     Active Substance: VITAMINS
  3. LISINOPRIL-H [Concomitant]
  4. VITAMIN D3 [Concomitant]
     Active Substance: CHOLECALCIFEROL
  5. CABOMETYX [Suspect]
     Active Substance: CABOZANTINIB S-MALATE
     Indication: RENAL CANCER
     Dosage: 60 MG, QD
     Route: 048
     Dates: start: 20171103
  6. ASPIRIN CHW [Concomitant]
  7. ATORVASTATIN [Concomitant]
     Active Substance: ATORVASTATIN
  8. CALCIUM [Concomitant]
     Active Substance: CALCIUM
  9. NIACIN. [Concomitant]
     Active Substance: NIACIN
  10. VITAMIN D [Concomitant]
     Active Substance: CHOLECALCIFEROL
  11. COREG [Concomitant]
     Active Substance: CARVEDILOL
  12. BRILINTA [Concomitant]
     Active Substance: TICAGRELOR
  13. GARLIC. [Concomitant]
     Active Substance: GARLIC
  14. OXYCODONE/APAP [Concomitant]
     Active Substance: ACETAMINOPHEN\OXYCODONE HYDROCHLORIDE
  15. BENZONATATE. [Concomitant]
     Active Substance: BENZONATATE
  16. LUTEIN [Concomitant]
     Active Substance: LUTEIN

REACTIONS (4)
  - Gastric disorder [Unknown]
  - Diarrhoea [Not Recovered/Not Resolved]
  - Fatigue [Not Recovered/Not Resolved]
  - Decreased appetite [Not Recovered/Not Resolved]
